FAERS Safety Report 14172131 (Version 2)
Quarter: 2017Q4

REPORT INFORMATION
  Report Type: Spontaneous
  Country: US (occurrence: US)
  Receive Date: 20171109
  Receipt Date: 20171115
  Transmission Date: 20180321
  Serious: Yes (Other)
  Sender: FDA-Public Use
  Company Number: US-BAUSCH-BL-2017-030960

PATIENT
  Age: 7 Year
  Sex: Male

DRUGS (1)
  1. DIASTAT [Suspect]
     Active Substance: DIAZEPAM
     Indication: SEIZURE
     Dosage: AS NEEDED
     Route: 054
     Dates: start: 20171103

REACTIONS (3)
  - Somnolence [Unknown]
  - Unresponsive to stimuli [Unknown]
  - Cough [Unknown]

NARRATIVE: CASE EVENT DATE: 20171103
